FAERS Safety Report 23014288 (Version 1)
Quarter: 2023Q4

REPORT INFORMATION
  Report Type: Spontaneous
  Country: KZ (occurrence: KZ)
  Receive Date: 20231002
  Receipt Date: 20231002
  Transmission Date: 20240110
  Serious: Yes (Other)
  Sender: FDA-Public Use
  Company Number: KZ-002147023-NVSC2023KZ210879

PATIENT
  Age: 40 Year

DRUGS (1)
  1. LAMPRENE [Suspect]
     Active Substance: CLOFAZIMINE
     Indication: Product used for unknown indication
     Route: 065

REACTIONS (1)
  - Gastritis alcoholic [Recovering/Resolving]
